FAERS Safety Report 7690952-9 (Version None)
Quarter: 2011Q3

REPORT INFORMATION
  Report Type: 
  Country: None (occurrence: None)
  Receive Date: 20110818
  Receipt Date: 20110808
  Transmission Date: 20111222
  Serious: Yes (Hospitalization)
  Sender: FDA-Public Use
  Company Number: KR-SANOFI-AVENTIS-2011SA052034

PATIENT
  Age: 65 Year
  Sex: Male

DRUGS (5)
  1. FLUOROURACIL [Suspect]
     Dosage: ON DAY 1-2
     Route: 040
     Dates: start: 20090624
  2. AVASTIN [Suspect]
     Indication: COLON CANCER
     Route: 065
     Dates: start: 20090624
  3. ELOXATIN [Suspect]
     Indication: COLON CANCER
     Dosage: ON DAY 1
     Route: 042
     Dates: start: 20090624
  4. FLUOROURACIL [Suspect]
     Indication: COLON CANCER
     Dosage: ON DAY 1-2
     Route: 042
  5. LEUCOVORIN CALCIUM [Suspect]
     Indication: COLON CANCER
     Dosage: ON DAY 1
     Route: 042
     Dates: start: 20090624

REACTIONS (1)
  - COLITIS ISCHAEMIC [None]
